FAERS Safety Report 9109667 (Version 1)
Quarter: 2013Q1

REPORT INFORMATION
  Report Type: Spontaneous
  Country: US (occurrence: US)
  Receive Date: 20130222
  Receipt Date: 20130222
  Transmission Date: 20140127
  Serious: Yes (Hospitalization, Other)
  Sender: FDA-Public Use
  Company Number: US-BAYER-2013-019978

PATIENT
  Age: 84 Year
  Sex: Male

DRUGS (7)
  1. BAYER GENUINE ASPIRIN ORIGINAL STRENGTH [Suspect]
  2. METFORMIN HCL [Suspect]
     Indication: TYPE 2 DIABETES MELLITUS
     Dosage: 500 MG, UNK
  3. NOVOLOG [Suspect]
     Indication: TYPE 2 DIABETES MELLITUS
     Dosage: UNK
     Dates: start: 20121003
  4. COUMADIN [Suspect]
  5. EZETIMIBE [Concomitant]
  6. NIACIN [Concomitant]
  7. NITRATES [Concomitant]

REACTIONS (12)
  - Urosepsis [None]
  - Tonsil cancer [None]
  - Osteoarthritis [None]
  - Gastritis haemorrhagic [None]
  - Asthenia [None]
  - Pyrexia [None]
  - Chills [None]
  - Flank pain [None]
  - Arthralgia [None]
  - Neck mass [None]
  - Oropharyngeal pain [None]
  - Ear pain [None]
